FAERS Safety Report 4834808-5 (Version None)
Quarter: 2005Q4

REPORT INFORMATION
  Report Type: 
  Country: None (occurrence: None)
  Receive Date: 20051122
  Receipt Date: 20051102
  Transmission Date: 20060501
  Serious: Yes (Disabling)
  Sender: FDA-Public Use
  Company Number: PHBS2005BE16475

PATIENT
  Sex: Male

DRUGS (4)
  1. TRILEPTAL [Suspect]
     Indication: EPILEPSY
     Route: 048
  2. GARDENAL [Suspect]
     Route: 065
  3. LAMICTAL [Suspect]
     Route: 065
  4. KEPPRA [Suspect]
     Route: 065

REACTIONS (7)
  - ABNORMAL BEHAVIOUR [None]
  - AGGRESSION [None]
  - AUTISM [None]
  - CONDUCT DISORDER [None]
  - HEAD BANGING [None]
  - RESTLESSNESS [None]
  - SELF MUTILATION [None]
